FAERS Safety Report 4872641-9 (Version None)
Quarter: 2006Q1

REPORT INFORMATION
  Report Type: 
  Country: None (occurrence: None)
  Receive Date: 20060103
  Receipt Date: 20051223
  Transmission Date: 20060701
  Serious: Yes (Hospitalization, Other)
  Sender: FDA-Public Use
  Company Number: FR200512002238

PATIENT
  Age: 62 Year
  Sex: Male
  Weight: 73 kg

DRUGS (4)
  1. GEMZAR [Suspect]
     Indication: METASTATIC BRONCHIAL CARCINOMA
     Dosage: SEE IMAGE
     Route: 042
     Dates: start: 20050801, end: 20050801
  2. GEMZAR [Suspect]
     Indication: METASTATIC BRONCHIAL CARCINOMA
     Dosage: SEE IMAGE
     Route: 042
     Dates: start: 20050913, end: 20050913
  3. CISPLATIN [Concomitant]
  4. MEDROL [Concomitant]

REACTIONS (16)
  - ABDOMINAL PAIN UPPER [None]
  - AMYOTROPHY [None]
  - ANAEMIA [None]
  - ASTHENIA [None]
  - CATHETER SITE RELATED REACTION [None]
  - CHEST PAIN [None]
  - GASTRIC ULCER [None]
  - HIATUS HERNIA [None]
  - MUSCULOSKELETAL PAIN [None]
  - MYALGIA [None]
  - OEDEMA PERIPHERAL [None]
  - OESOPHAGEAL CANDIDIASIS [None]
  - OESOPHAGITIS [None]
  - PYREXIA [None]
  - THROMBOCYTOPENIA [None]
  - VENOUS THROMBOSIS [None]
